FAERS Safety Report 5011844-X (Version None)
Quarter: 2006Q2

REPORT INFORMATION
  Report Type: 
  Country: None (occurrence: None)
  Receive Date: 20060524
  Receipt Date: 20060524
  Transmission Date: 20061013
  Serious: Yes (Hospitalization)
  Sender: FDA-Public Use
  Company Number: None

PATIENT
  Age: 53 Year
  Sex: Male
  Weight: 99.1 kg

DRUGS (19)
  1. DOXYCYCLINE [Suspect]
     Indication: INFECTION
     Dosage: 100MG PO BID
     Route: 048
     Dates: start: 20060125, end: 20060126
  2. DOXYCYCLINE [Suspect]
     Indication: RASH
     Dosage: 100MG PO BID
     Route: 048
     Dates: start: 20060125, end: 20060126
  3. LISINOPRIL [Concomitant]
  4. ATENOLOL [Concomitant]
  5. FUROSEMIDE [Concomitant]
  6. LORATADINE [Concomitant]
  7. SILDENAFIL CITRATE [Concomitant]
  8. GEMBIBROZIL [Concomitant]
  9. NICOTINE GUM [Concomitant]
  10. SIMVASTATIN [Concomitant]
  11. ALLOPURINOL [Concomitant]
  12. OMEPRAZOLE [Concomitant]
  13. DOCUSATE [Concomitant]
  14. NORTYPTILINE [Concomitant]
  15. APAP WITH CODEINE [Concomitant]
  16. METHADONE HCL [Concomitant]
  17. HYDROXYZINE [Concomitant]
  18. HYDROCORTISONE [Concomitant]
  19. PREDNISONE [Concomitant]

REACTIONS (6)
  - ACUTE PRERENAL FAILURE [None]
  - CHEST PAIN [None]
  - DEHYDRATION [None]
  - DYSPNOEA [None]
  - RASH ERYTHEMATOUS [None]
  - THERAPEUTIC RESPONSE DECREASED [None]
